FAERS Safety Report 6606650-6 (Version None)
Quarter: 2010Q1

REPORT INFORMATION
  Report Type: 
  Country: None (occurrence: None)
  Receive Date: 20100226
  Receipt Date: 20100218
  Transmission Date: 20100710
  Serious: Yes (Disabling)
  Sender: FDA-Public Use
  Company Number: DE-ABBOTT-10P-062-0628233-00

PATIENT
  Sex: Male

DRUGS (1)
  1. TRENANTONE [Suspect]
     Indication: PROSTATE CANCER METASTATIC
     Route: 058
     Dates: start: 20090812

REACTIONS (3)
  - INJECTION SITE ERYTHEMA [None]
  - INJECTION SITE PAIN [None]
  - INJECTION SITE SWELLING [None]
